FAERS Safety Report 15981533 (Version 2)
Quarter: 2019Q1

REPORT INFORMATION
  Report Type: Report from Study
  Country: US (occurrence: US)
  Receive Date: 20190219
  Receipt Date: 20190220
  Transmission Date: 20190418
  Serious: Yes (Hospitalization)
  Sender: FDA-Public Use
  Company Number: US-JNJFOC-20190212447

PATIENT
  Age: 53 Year
  Sex: Female

DRUGS (2)
  1. HUMIRA [Suspect]
     Active Substance: ADALIMUMAB
     Indication: PRODUCT USED FOR UNKNOWN INDICATION
     Route: 058
     Dates: start: 201208, end: 20170703
  2. STELARA [Suspect]
     Active Substance: USTEKINUMAB
     Indication: CROHN^S DISEASE
     Route: 058
     Dates: start: 20170727

REACTIONS (10)
  - Acute respiratory failure [Unknown]
  - Metapneumovirus infection [Unknown]
  - Hypophagia [Unknown]
  - Drug ineffective [Unknown]
  - Gastrointestinal haemorrhage [Unknown]
  - Laryngeal ulceration [Unknown]
  - Organising pneumonia [Unknown]
  - Salmonellosis [Unknown]
  - Vertigo [Recovered/Resolved]
  - Skin discolouration [Recovered/Resolved]

NARRATIVE: CASE EVENT DATE: 201802
